FAERS Safety Report 7047222-1 (Version None)
Quarter: 2010Q4

REPORT INFORMATION
  Report Type: 
  Country: None (occurrence: None)
  Receive Date: 20101015
  Receipt Date: 20101012
  Transmission Date: 20110411
  Serious: Yes (Life-Threatening, Congenital Anomaly)
  Sender: FDA-Public Use
  Company Number: FR-ROCHE-713988

PATIENT
  Sex: Male
  Weight: 2.3 kg

DRUGS (10)
  1. RIVOTRIL [Suspect]
     Indication: PRODUCT USED FOR UNKNOWN INDICATION
     Dosage: SOLUTION IN DROP, STRENGTH: 2.5 MG/ML
     Route: 064
  2. EFFEXOR [Suspect]
     Indication: MAJOR DEPRESSION
     Route: 064
  3. NUCTALON [Suspect]
     Indication: PRODUCT USED FOR UNKNOWN INDICATION
     Dosage: DOSE: 0.5 DOSE FORM
     Route: 064
  4. SERESTA [Suspect]
     Indication: PRODUCT USED FOR UNKNOWN INDICATION
     Route: 064
     Dates: end: 20100101
  5. KARDEGIC [Concomitant]
     Route: 064
  6. NOCERTONE [Concomitant]
     Indication: MIGRAINE
     Route: 064
  7. IKARAN [Concomitant]
     Indication: MIGRAINE
     Route: 064
  8. PRAXINOR [Concomitant]
     Dosage: COATED TABLET
     Route: 064
  9. ESBERIVEN [Concomitant]
     Route: 064
  10. VASTAREL [Concomitant]
     Route: 064

REACTIONS (4)
  - APNOEA [None]
  - APPARENT DEATH [None]
  - BENIGN CONGENITAL HYPOTONIA [None]
  - WITHDRAWAL SYNDROME [None]
